FAERS Safety Report 7238258-6 (Version None)
Quarter: 2011Q1

REPORT INFORMATION
  Report Type: 
  Country: None (occurrence: None)
  Receive Date: 20110119
  Receipt Date: 20110119
  Transmission Date: 20110831
  Serious: Yes (Other)
  Sender: FDA-Public Use
  Company Number: None

PATIENT
  Sex: Female
  Weight: 117.9352 kg

DRUGS (1)
  1. TYLENOL W/ CODEINE NO. 4 [Suspect]
     Indication: PAIN
     Dosage: 1 TAB QID PRN PO
     Route: 048
     Dates: start: 20110107, end: 20110112

REACTIONS (5)
  - VOMITING [None]
  - NAUSEA [None]
  - PRURITUS GENERALISED [None]
  - PRODUCT SUBSTITUTION ISSUE [None]
  - RASH [None]
